FAERS Safety Report 4983703-X (Version None)
Quarter: 2006Q2

REPORT INFORMATION
  Report Type: 
  Country: None (occurrence: None)
  Receive Date: 20060425
  Receipt Date: 20060425
  Transmission Date: 20061013
  Serious: Yes (Hospitalization)
  Sender: FDA-Public Use
  Company Number: None

PATIENT
  Sex: Male
  Weight: 88.6 kg

DRUGS (5)
  1. GLIADEL [Suspect]
     Indication: GLIOBLASTOMA MULTIFORME
     Dosage: 7.7 MG PER WAFER - MAX OF 8
     Dates: start: 20060316
  2. O6-BENZYLGUANINE (O6BG) [Suspect]
     Indication: GLIOBLASTOMA MULTIFORME
     Dosage: 30 MG/M2 INFUSION X 5 DAYS
     Dates: start: 20060316, end: 20060321
  3. DECADRON [Concomitant]
  4. DILANTIN [Concomitant]
  5. MULTI-VITAMIN [Concomitant]

REACTIONS (6)
  - ANTICONVULSANT DRUG LEVEL DECREASED [None]
  - ANXIETY [None]
  - ASTHENIA [None]
  - CONVULSION [None]
  - POSTICTAL STATE [None]
  - VISUAL ACUITY REDUCED [None]
